FAERS Safety Report 7430011-3 (Version None)
Quarter: 2011Q2

REPORT INFORMATION
  Report Type: 
  Country: None (occurrence: None)
  Receive Date: 20110421
  Receipt Date: 20110414
  Transmission Date: 20111010
  Serious: Yes (Other)
  Sender: FDA-Public Use
  Company Number: US-US-EMD SERONO, INC.-7054012

PATIENT
  Sex: Female

DRUGS (1)
  1. REBIF [Suspect]
     Indication: PRODUCT USED FOR UNKNOWN INDICATION
     Route: 058
     Dates: start: 20080414

REACTIONS (4)
  - INTERVERTEBRAL DISC PROTRUSION [None]
  - HOT FLUSH [None]
  - ROAD TRAFFIC ACCIDENT [None]
  - INFLUENZA LIKE ILLNESS [None]
